FAERS Safety Report 7943591-6 (Version None)
Quarter: 2011Q4

REPORT INFORMATION
  Report Type: 
  Country: None (occurrence: None)
  Receive Date: 20111128
  Receipt Date: 20111117
  Transmission Date: 20120403
  Serious: Yes (Other)
  Sender: FDA-Public Use
  Company Number: FR-ELI_LILLY_AND_COMPANY-FR201111006806

PATIENT
  Age: 75 Year
  Sex: Female

DRUGS (4)
  1. FLECAINIDE ACETATE [Concomitant]
  2. PRAVASTATIN [Concomitant]
  3. PREVISCAN [Concomitant]
  4. FORTEO [Suspect]
     Indication: OSTEOPOROTIC FRACTURE
     Dosage: 20 UG, QD
     Route: 058
     Dates: start: 20110919, end: 20110923

REACTIONS (1)
  - PULMONARY OEDEMA [None]
